FAERS Safety Report 25671977 (Version 1)
Quarter: 2025Q3

REPORT INFORMATION
  Report Type: Spontaneous
  Country: IN (occurrence: IN)
  Receive Date: 20250812
  Receipt Date: 20250812
  Transmission Date: 20251020
  Serious: Yes (Death, Life-Threatening, Hospitalization, Other)
  Sender: ASTELLAS
  Company Number: IN-ASTELLAS-2025-AER-043821

PATIENT
  Age: 40 Year
  Sex: Male

DRUGS (7)
  1. TACROLIMUS [Suspect]
     Active Substance: TACROLIMUS
     Indication: Renal transplant
     Route: 065
  2. TACROLIMUS [Suspect]
     Active Substance: TACROLIMUS
     Route: 065
  3. TACROLIMUS [Suspect]
     Active Substance: TACROLIMUS
     Route: 065
  4. MYCOPHENOLIC ACID [Suspect]
     Active Substance: MYCOPHENOLIC ACID
     Indication: Renal transplant
     Route: 065
  5. PREDNISOLONE [Concomitant]
     Active Substance: PREDNISOLONE
     Indication: Renal transplant
     Route: 065
  6. PREDNISOLONE [Concomitant]
     Active Substance: PREDNISOLONE
     Route: 065
  7. METHYLPREDNISOLONE [Concomitant]
     Active Substance: METHYLPREDNISOLONE
     Indication: Blood creatinine abnormal
     Route: 065

REACTIONS (12)
  - Urinary tract infection [Fatal]
  - Bacterial infection [Fatal]
  - Pseudomonas infection [Fatal]
  - Pyrexia [Fatal]
  - Renal graft infection [Fatal]
  - Renal impairment [Fatal]
  - Septic shock [Fatal]
  - Metabolic acidosis [Fatal]
  - Renal cyst infection [Fatal]
  - Lower respiratory tract infection [Fatal]
  - Dyspnoea [Fatal]
  - Enterococcal infection [Recovered/Resolved]
